FAERS Safety Report 23603046 (Version 1)
Quarter: 2024Q1

REPORT INFORMATION
  Report Type: Spontaneous
  Country: US (occurrence: US)
  Receive Date: 20240306
  Receipt Date: 20240306
  Transmission Date: 20240409
  Serious: No
  Sender: FDA-Public Use
  Company Number: US-TAKEDA-2024TUS020787

PATIENT
  Sex: Male

DRUGS (1)
  1. TAKHZYRO [Suspect]
     Active Substance: LANADELUMAB-FLYO
     Indication: Hereditary angioedema
     Dosage: UNK
     Route: 065

REACTIONS (4)
  - Stress [Unknown]
  - Insurance issue [Unknown]
  - Hereditary angioedema [Unknown]
  - Product use issue [Unknown]
